FAERS Safety Report 17051207 (Version 2)
Quarter: 2019Q4

REPORT INFORMATION
  Report Type: Spontaneous
  Country: JP (occurrence: JP)
  Receive Date: 20191120
  Receipt Date: 20191213
  Transmission Date: 20200122
  Serious: No
  Sender: FDA-Public Use
  Company Number: JP-BEH-2019109655

PATIENT
  Age: 55 Year
  Sex: Male
  Weight: 77.6 kg

DRUGS (5)
  1. AMLODIPINE [AMLODIPINE BESILATE] [Concomitant]
     Active Substance: AMLODIPINE BESYLATE
     Indication: HYPERTENSION
     Dosage: 5 MILLIGRAM
     Route: 048
     Dates: start: 20140529
  2. KCENTRA [Suspect]
     Active Substance: COAGULATION FACTOR IX HUMAN\COAGULATION FACTOR VII HUMAN\COAGULATION FACTOR X HUMAN\PROTEIN C\PROTEIN S HUMAN\PROTHROMBIN
     Indication: MUSCLE HAEMORRHAGE
     Dosage: 1000 INTERNATIONAL UNIT
     Route: 042
     Dates: start: 20191111, end: 20191111
  3. WARFARIN [WARFARIN POTASSIUM] [Concomitant]
     Active Substance: WARFARIN POTASSIUM
     Indication: EMBOLISM
     Dosage: 6 MILLIGRAM
     Route: 048
     Dates: start: 20140529
  4. ETIZOLAM [Concomitant]
     Active Substance: ETIZOLAM
     Indication: INSOMNIA
     Dosage: 0.5 MILLIGRAM
     Route: 048
     Dates: start: 20140529
  5. KCENTRA [Suspect]
     Active Substance: COAGULATION FACTOR IX HUMAN\COAGULATION FACTOR VII HUMAN\COAGULATION FACTOR X HUMAN\PROTEIN C\PROTEIN S HUMAN\PROTHROMBIN
     Indication: MUSCLE HAEMORRHAGE
     Dosage: 1000 INTERNATIONAL UNIT
     Route: 042
     Dates: start: 20191111, end: 20191111

REACTIONS (1)
  - Blood pressure decreased [Recovered/Resolved]

NARRATIVE: CASE EVENT DATE: 20191111
